FAERS Safety Report 6071696-6 (Version None)
Quarter: 2009Q1

REPORT INFORMATION
  Report Type: 
  Country: None (occurrence: None)
  Receive Date: 20090209
  Receipt Date: 20090209
  Transmission Date: 20090719
  Serious: Yes (Hospitalization)
  Sender: FDA-Public Use
  Company Number: None

PATIENT
  Age: 61 Year
  Sex: Male
  Weight: 127.6 kg

DRUGS (1)
  1. MOXIFLOXACIN HCL [Suspect]
     Indication: CELLULITIS
     Dosage: 400 MG EVERY DAY PO
     Route: 048
     Dates: start: 20081021, end: 20081031

REACTIONS (2)
  - PYREXIA [None]
  - RASH [None]
